FAERS Safety Report 17562692 (Version 1)
Quarter: 2020Q1

REPORT INFORMATION
  Report Type: Spontaneous
  Country: US (occurrence: US)
  Receive Date: 20200319
  Receipt Date: 20200319
  Transmission Date: 20200409
  Serious: No
  Sender: FDA-Public Use
  Company Number: US-TEVA-2020-US-1204227

PATIENT
  Sex: Female

DRUGS (2)
  1. CLONAZEPAM-TEVA [Suspect]
     Active Substance: CLONAZEPAM
     Indication: PANIC ATTACK
  2. CLONAZEPAM-TEVA [Suspect]
     Active Substance: CLONAZEPAM
     Indication: ANXIETY
     Route: 065
     Dates: start: 1990

REACTIONS (2)
  - Product substitution issue [Unknown]
  - Nightmare [Recovered/Resolved]

NARRATIVE: CASE EVENT DATE: 2019
